FAERS Safety Report 5279805-3 (Version None)
Quarter: 2007Q1

REPORT INFORMATION
  Report Type: 
  Country: None (occurrence: None)
  Receive Date: 20061212
  Receipt Date: 20040928
  Transmission Date: 20070707
  Serious: Yes (Hospitalization)
  Sender: FDA-Public Use
  Company Number: 2004UW20418

PATIENT
  Age: 58 Year
  Sex: Female
  Weight: 53.5244 kg

DRUGS (4)
  1. RHINOCORT AQUA [Suspect]
     Indication: RHINITIS ALLERGIC
     Dosage: 1 SPRAY (32 MCG) IN EACH NOSTRIL
     Dates: start: 20040924
  2. PAXIL [Concomitant]
  3. ALLEGRA [Concomitant]
  4. LISINOPRIL [Concomitant]

REACTIONS (1)
  - HYPERSENSITIVITY [None]
